FAERS Safety Report 17804060 (Version 1)
Quarter: 2020Q2

REPORT INFORMATION
  Report Type: Report from Study
  Country: CA (occurrence: CA)
  Receive Date: 20200519
  Receipt Date: 20200519
  Transmission Date: 20200714
  Serious: Yes (Disabling)
  Sender: FDA-Public Use
  Company Number: CA-AMGEN-CANSL2020072231

PATIENT
  Age: 62 Year
  Sex: Male
  Weight: 76.5 kg

DRUGS (6)
  1. LUTEIN [TAGETES SPP.] [Concomitant]
     Dosage: 25 MILLIGRAM
  2. CALCIUM [Concomitant]
     Active Substance: CALCIUM
     Indication: OSTEOPOROSIS
     Dosage: 250 MILLIGRAM, QD
     Dates: start: 20191022
  3. PROLIA [Suspect]
     Active Substance: DENOSUMAB
     Indication: OSTEOPOROSIS
     Dosage: 60 MILLIGRAM PER MILLILITRE, Q6MO
     Route: 058
     Dates: start: 20191022
  4. MAGNESIUM [Concomitant]
     Active Substance: MAGNESIUM
     Dosage: 420 MILLIGRAM
  5. ESCITALOPRAM [Concomitant]
     Active Substance: ESCITALOPRAM OXALATE
     Dosage: 5 MILLIGRAM
  6. VITAMIN D3 [Concomitant]
     Active Substance: CHOLECALCIFEROL
     Indication: OSTEOPOROSIS
     Dosage: 2000 UNIT, QD
     Dates: start: 2009

REACTIONS (5)
  - Anxiety [Recovered/Resolved]
  - Menopausal symptoms [Unknown]
  - Blood phosphorus decreased [Not Recovered/Not Resolved]
  - Panic attack [Unknown]
  - Weight decreased [Not Recovered/Not Resolved]

NARRATIVE: CASE EVENT DATE: 20191129
